FAERS Safety Report 6701230-6 (Version None)
Quarter: 2010Q2

REPORT INFORMATION
  Report Type: 
  Country: None (occurrence: None)
  Receive Date: 20100427
  Receipt Date: 20100419
  Transmission Date: 20101027
  Serious: Yes (Other)
  Sender: FDA-Public Use
  Company Number: 1000013366

PATIENT
  Age: 38 Year
  Sex: Female
  Weight: 92 kg

DRUGS (3)
  1. ESCITALOPRAM [Suspect]
     Indication: DEPRESSION
     Dosage: 10 MG (10 MG, 1 IN 1 D), ORAL
     Route: 048
     Dates: start: 20091201, end: 20091204
  2. TRANXENE [Concomitant]
  3. STRESAM [Concomitant]

REACTIONS (2)
  - ABDOMINAL PAIN [None]
  - METRORRHAGIA [None]
